FAERS Safety Report 18061436 (Version 1)
Quarter: 2020Q3

REPORT INFORMATION
  Report Type: Report from Study
  Country: CA (occurrence: CA)
  Receive Date: 20200723
  Receipt Date: 20200723
  Transmission Date: 20201103
  Serious: Yes (Other)
  Sender: FDA-Public Use
  Company Number: CA-PFIZER INC-2020278592

PATIENT
  Age: 30 Year
  Sex: Male

DRUGS (7)
  1. METHYLPREDNISOLONE SODIUM SUCCINATE. [Suspect]
     Active Substance: METHYLPREDNISOLONE SODIUM SUCCINATE
     Dosage: 100 MG
     Route: 042
  2. OCRELIZUMAB. [Suspect]
     Active Substance: OCRELIZUMAB
     Indication: PRIMARY PROGRESSIVE MULTIPLE SCLEROSIS
  3. DECADRON [Suspect]
     Active Substance: DEXAMETHASONE
     Route: 065
  4. ZENHALE [Concomitant]
     Active Substance: FORMOTEROL FUMARATE\MOMETASONE FUROATE
     Indication: ASTHMA
  5. VENTOLIN [Concomitant]
     Active Substance: ALBUTEROL SULFATE
     Indication: ASTHMA
  6. OCRELIZUMAB. [Suspect]
     Active Substance: OCRELIZUMAB
     Indication: RELAPSING-REMITTING MULTIPLE SCLEROSIS
     Dosage: 300 MG
     Route: 042
  7. SYMBICORT [Concomitant]
     Active Substance: BUDESONIDE\FORMOTEROL FUMARATE DIHYDRATE
     Indication: ASTHMA

REACTIONS (14)
  - Hypersensitivity [Not Recovered/Not Resolved]
  - Thirst [Not Recovered/Not Resolved]
  - Arthralgia [Not Recovered/Not Resolved]
  - Condition aggravated [Not Recovered/Not Resolved]
  - Dyspnoea [Not Recovered/Not Resolved]
  - Eye inflammation [Not Recovered/Not Resolved]
  - Infusion related reaction [Not Recovered/Not Resolved]
  - Pneumonitis [Not Recovered/Not Resolved]
  - Intestinal haemorrhage [Not Recovered/Not Resolved]
  - Nausea [Not Recovered/Not Resolved]
  - Product dispensing error [Not Recovered/Not Resolved]
  - Swelling [Not Recovered/Not Resolved]
  - Lower respiratory tract infection [Not Recovered/Not Resolved]
  - Productive cough [Not Recovered/Not Resolved]
